FAERS Safety Report 16895503 (Version 2)
Quarter: 2021Q3

REPORT INFORMATION
  Report Type: Spontaneous
  Country: CA (occurrence: CA)
  Receive Date: 20191008
  Receipt Date: 20210804
  Transmission Date: 20211014
  Serious: Yes (Other)
  Sender: FDA-Public Use
  Company Number: CA-PFIZER INC-2019426965

PATIENT
  Age: 53 Year
  Sex: Male

DRUGS (2)
  1. DOXORUBICIN HCL [Suspect]
     Active Substance: DOXORUBICIN HYDROCHLORIDE
     Indication: OSTEITIS DEFORMANS
  2. DOXORUBICIN HCL [Suspect]
     Active Substance: DOXORUBICIN HYDROCHLORIDE
     Indication: OSTEITIS DEFORMANS
     Dosage: 50 MG/M2, UNK
     Route: 065

REACTIONS (3)
  - Off label use [Unknown]
  - Impaired work ability [Unknown]
  - Febrile neutropenia [Unknown]
